FAERS Safety Report 11536594 (Version 1)
Quarter: 2015Q3

REPORT INFORMATION
  Report Type: Spontaneous
  Country: FR (occurrence: FR)
  Receive Date: 20150922
  Receipt Date: 20150922
  Transmission Date: 20151125
  Serious: Yes (Hospitalization, Other)
  Sender: FDA-Public Use
  Company Number: FR-PFIZER INC-2015301557

PATIENT
  Age: 24 Year
  Sex: Female

DRUGS (2)
  1. IBUPROFEN. [Suspect]
     Active Substance: IBUPROFEN
     Indication: CHEST PAIN
     Dosage: 2.4 G, DAILY
     Route: 048
  2. IBUPROFEN. [Suspect]
     Active Substance: IBUPROFEN
     Indication: PYREXIA

REACTIONS (7)
  - Lung abscess [Recovered/Resolved]
  - Acute respiratory failure [Recovered/Resolved]
  - Pneumonia pneumococcal [Recovered/Resolved]
  - Infectious pleural effusion [Recovered/Resolved]
  - Overdose [Recovered/Resolved]
  - Pulmonary cavitation [Recovered/Resolved]
  - Bronchiectasis [Not Recovered/Not Resolved]
